FAERS Safety Report 21879144 (Version 1)
Quarter: 2023Q1

REPORT INFORMATION
  Report Type: Spontaneous
  Country: PL (occurrence: PL)
  Receive Date: 20230118
  Receipt Date: 20230118
  Transmission Date: 20230417
  Serious: Yes (Other)
  Sender: FDA-Public Use
  Company Number: PL-ROCHE-3229942

PATIENT
  Age: 58 Year
  Sex: Female

DRUGS (1)
  1. TRASTUZUMAB [Suspect]
     Active Substance: TRASTUZUMAB
     Indication: Ovarian cancer
     Dosage: 600 MILLIGRAM, 3 WEEK CYCLE
     Route: 058
     Dates: start: 202103

REACTIONS (3)
  - Total lung capacity decreased [Unknown]
  - Metastases to the respiratory system [Unknown]
  - Off label use [Unknown]

NARRATIVE: CASE EVENT DATE: 20210301
